FAERS Safety Report 5988791-X (Version None)
Quarter: 2008Q4

REPORT INFORMATION
  Report Type: 
  Country: None (occurrence: None)
  Receive Date: 20081208
  Receipt Date: 20081208
  Transmission Date: 20090506
  Serious: Yes (Other)
  Sender: FDA-Public Use
  Company Number: None

PATIENT
  Age: 56 Year
  Sex: Male
  Weight: 69 kg

DRUGS (5)
  1. PLAVIX [Suspect]
     Indication: ANTICOAGULANT THERAPY
     Dosage: 75 MG QD PO
     Route: 048
     Dates: start: 20081101, end: 20081129
  2. ASPIRIN [Concomitant]
  3. METOPROLOL [Concomitant]
  4. COLACE [Concomitant]
  5. ... [Concomitant]

REACTIONS (4)
  - HYPERSENSITIVITY [None]
  - NIKOLSKY'S SIGN [None]
  - POLYARTHRITIS [None]
  - TYPE III IMMUNE COMPLEX MEDIATED REACTION [None]
